FAERS Safety Report 10129905 (Version 2)
Quarter: 2015Q1

REPORT INFORMATION
  Report Type: Other
  Country: US (occurrence: US)
  Receive Date: 20140428
  Receipt Date: 20150205
  Transmission Date: 20150720
  Serious: Yes (Hospitalization, Other)
  Sender: FDA-Public Use
  Company Number: US-GSKPPD-2014GSK031775

PATIENT
  Age: 46 Year
  Sex: Male

DRUGS (7)
  1. NIFEDIPINE SR [Concomitant]
     Active Substance: NIFEDIPINE
  2. AVANDIA [Suspect]
     Active Substance: ROSIGLITAZONE MALEATE
     Indication: DIABETES MELLITUS
     Dosage: DATES OF AVANDIA USE COULD NOT BE CONFIRMED IN RECORDS REVIEWED.
     Route: 048
  3. ATENOLOL. [Concomitant]
     Active Substance: ATENOLOL
  4. DILANTIN [Concomitant]
     Active Substance: PHENYTOIN
  5. ENALAPRIL [Concomitant]
     Active Substance: ENALAPRIL
  6. LOVENOX [Concomitant]
     Active Substance: ENOXAPARIN SODIUM
  7. HYDROCHLOROTHIAZIDE. [Concomitant]
     Active Substance: HYDROCHLOROTHIAZIDE

REACTIONS (1)
  - Cerebrovascular accident [Recovered/Resolved]

NARRATIVE: CASE EVENT DATE: 20060110
